FAERS Safety Report 9054013 (Version 3)
Quarter: 2013Q1

REPORT INFORMATION
  Report Type: Spontaneous
  Country: US (occurrence: US)
  Receive Date: 20130208
  Receipt Date: 20130319
  Transmission Date: 20140127
  Serious: Yes (Other)
  Sender: FDA-Public Use
  Company Number: US-PFIZER INC-2013053284

PATIENT
  Age: 35 Year
  Sex: Female

DRUGS (5)
  1. EFFEXOR XR [Suspect]
     Indication: DEPRESSION
     Dosage: 37.5 MG, DAILY
     Route: 048
     Dates: start: 201202, end: 20120720
  2. EFFEXOR XR [Suspect]
     Indication: ANXIETY
     Dosage: 37.5 MG, DAILY
     Route: 048
     Dates: start: 20121114, end: 201302
  3. EFFEXOR XR [Suspect]
     Dosage: 37.5 MG DAILY
     Route: 048
     Dates: start: 201301, end: 201301
  4. ZYRTEC [Concomitant]
     Indication: IDIOPATHIC URTICARIA
     Dosage: 10 MG, DAILY
     Route: 048
  5. ZOLPIDEM [Concomitant]
     Indication: INSOMNIA
     Dosage: 5 MG, AS NEEDED, QHS
     Route: 048

REACTIONS (1)
  - Obesity [Unknown]
